FAERS Safety Report 25523201 (Version 2)
Quarter: 2025Q3

REPORT INFORMATION
  Report Type: Report from Study
  Country: GB (occurrence: GB)
  Receive Date: 20250707
  Receipt Date: 20250922
  Transmission Date: 20251021
  Serious: Yes (Hospitalization)
  Sender: IPSEN BIOPHARMACEUTICALS, INC.
  Company Number: GB-IPSEN Group, Research and Development-2025-05868

PATIENT
  Age: 71 Year
  Sex: Female

DRUGS (2)
  1. LANREOTIDE ACETATE [Suspect]
     Active Substance: LANREOTIDE ACETATE
     Indication: Neuroendocrine tumour
     Dates: start: 20230614
  2. LANREOTIDE ACETATE [Suspect]
     Active Substance: LANREOTIDE ACETATE
     Dosage: 120MG/0.5ML SOLUTION FOR INJECTION  PRE-FILLED SYRINGE
     Route: 058

REACTIONS (9)
  - Pleural effusion [Unknown]
  - Dyspnoea [Unknown]
  - Post procedural complication [Unknown]
  - Cardiac valve disease [Recovering/Resolving]
  - Cardiac pacemaker insertion [Unknown]
  - Wrist fracture [Recovering/Resolving]
  - Fall [Recovering/Resolving]
  - Fluid retention [Not Recovered/Not Resolved]
  - Off label use [Unknown]

NARRATIVE: CASE EVENT DATE: 20250601
